FAERS Safety Report 10262753 (Version 2)
Quarter: 2014Q2

REPORT INFORMATION
  Report Type: Report from Study
  Country: US (occurrence: US)
  Receive Date: 20140626
  Receipt Date: 20140626
  Transmission Date: 20141212
  Serious: No
  Sender: FDA-Public Use
  Company Number: US-MYLANLABS-2013S1014426

PATIENT
  Sex: Male

DRUGS (1)
  1. CLOZAPINE TABLETS [Suspect]
     Dates: start: 20130604, end: 20130620

REACTIONS (2)
  - Dizziness [Not Recovered/Not Resolved]
  - Nervousness [Not Recovered/Not Resolved]
